FAERS Safety Report 6716275-X (Version None)
Quarter: 2010Q2

REPORT INFORMATION
  Report Type: 
  Country: None (occurrence: None)
  Receive Date: 20100507
  Receipt Date: 20100504
  Transmission Date: 20101027
  Serious: Yes (Death, Hospitalization)
  Sender: FDA-Public Use
  Company Number: US-BRISTOL-MYERS SQUIBB COMPANY-15092356

PATIENT
  Age: 60 Year
  Sex: Male
  Weight: 161 kg

DRUGS (22)
  1. CETUXIMAB [Suspect]
     Indication: NON-SMALL CELL LUNG CANCER
     Route: 042
     Dates: start: 20100415, end: 20100422
  2. CARBOPLATIN [Suspect]
     Indication: NON-SMALL CELL LUNG CANCER
     Route: 042
     Dates: start: 20100415, end: 20100415
  3. GEMCITABINE HCL [Suspect]
     Indication: NON-SMALL CELL LUNG CANCER
     Route: 042
     Dates: start: 20100415, end: 20100422
  4. NEXIUM [Concomitant]
     Route: 065
  5. VYTORIN [Concomitant]
     Dosage: 1DF-10/40MG
     Route: 065
  6. DIAZEPAM [Concomitant]
     Route: 065
  7. BENZONATATE [Concomitant]
     Route: 065
  8. LEVEMIR [Concomitant]
     Dosage: 1DF-90 UNITS
     Route: 065
  9. OXYCODONE HCL [Concomitant]
     Route: 065
  10. OXYCONTIN [Concomitant]
     Route: 065
  11. FLECTOR [Concomitant]
     Dosage: PATCH
     Route: 065
  12. INNOPRAN XL [Concomitant]
     Route: 065
  13. PLAVIX [Concomitant]
     Route: 065
  14. FISH OIL [Concomitant]
     Route: 065
  15. GEMFIBROZIL [Concomitant]
     Route: 065
  16. NIACIN [Concomitant]
     Route: 065
  17. METFORMIN [Concomitant]
     Route: 065
  18. HYDROCHLOROTHIAZIDE [Concomitant]
     Route: 065
  19. AGGRENOX [Concomitant]
     Dosage: 1DF-25/200 MCG
     Route: 065
  20. FOLINIC ACID [Concomitant]
     Route: 065
  21. DEXAMETHASONE [Concomitant]
     Route: 065
  22. PSYLLIUM HYDROPHILIC MUCILLOID [Concomitant]
     Route: 065

REACTIONS (2)
  - DRUG TOXICITY [None]
  - FEBRILE NEUTROPENIA [None]
